FAERS Safety Report 7554191-4 (Version None)
Quarter: 2011Q2

REPORT INFORMATION
  Report Type: 
  Country: None (occurrence: None)
  Receive Date: 20110617
  Receipt Date: 20110615
  Transmission Date: 20111010
  Serious: No
  Sender: FDA-Public Use
  Company Number: US-PFIZER INC-2011131584

PATIENT
  Sex: Female
  Weight: 63.5 kg

DRUGS (1)
  1. EFFEXOR XR [Suspect]
     Indication: DEPRESSION
     Dosage: 150 MG, 1X/DAY
     Route: 048
     Dates: start: 20000101

REACTIONS (4)
  - INFLUENZA [None]
  - VOMITING [None]
  - HEADACHE [None]
  - DIZZINESS [None]
